FAERS Safety Report 15082670 (Version 1)
Quarter: 2018Q3

REPORT INFORMATION
  Report Type: Spontaneous
  Country: DE (occurrence: DE)
  Receive Date: 20180628
  Receipt Date: 20180628
  Transmission Date: 20181010
  Serious: Yes (Hospitalization)
  Sender: FDA-Public Use
  Company Number: DE-TEVA-2018-DE-911883

PATIENT
  Age: 92 Year
  Sex: Male
  Weight: 71.7 kg

DRUGS (11)
  1. XARELTO [Concomitant]
     Active Substance: RIVAROXABAN
     Dosage: 1?0?0?0
     Route: 048
  2. SIMVASTATIN ? 1 A PHARMA 40 MG [Concomitant]
     Dosage: 0?0?1?0
     Route: 048
  3. PANTOPRAZOL 1A PHARMA 40MG [Concomitant]
     Dosage: 0?0?1?0
     Route: 048
  4. METOPROLOL?RATIOPHARM SUCCINAT 47,5MG [Suspect]
     Active Substance: METOPROLOL
     Dosage: 1?0?0?0
     Route: 048
  5. L?THYROX HEXAL 75UG [Concomitant]
     Dosage: 1?0?0?0,
     Route: 048
  6. TAMSULOSIN AL 0,4MG [Concomitant]
     Dosage: 1?0?0?0
     Route: 048
  7. ASPIRIN. [Concomitant]
     Active Substance: ASPIRIN
     Dosage: 1?0?0?0
     Route: 048
  8. RISPERDAL 0,5MG [Concomitant]
     Dosage: 1?0?0?0
     Route: 048
  9. FERRO SANOL DUODENAL 100MG [Concomitant]
     Dosage: 1?0?0?0, PELLETS
     Route: 048
  10. DEKRISTOL 20000I.E. [Concomitant]
     Dosage: 20000 IE / WOCHE, 1?0?0?0
     Route: 048
  11. FUROSEMID 40?1A PHARMA [Concomitant]
     Dosage: 1?0?1?0
     Route: 048

REACTIONS (3)
  - Syncope [Unknown]
  - General physical health deterioration [Unknown]
  - Dyspnoea [Unknown]
